FAERS Safety Report 26200274 (Version 1)
Quarter: 2025Q4

REPORT INFORMATION
  Report Type: Report from Study
  Country: US (occurrence: US)
  Receive Date: 20251225
  Receipt Date: 20251225
  Transmission Date: 20260117
  Serious: Yes (Hospitalization)
  Sender: OTSUKA
  Company Number: US-MMM-Otsuka-1BLZQV45

PATIENT
  Sex: Female

DRUGS (2)
  1. TOLVAPTAN [Suspect]
     Active Substance: TOLVAPTAN
     Indication: Blood osmolarity decreased
     Dosage: 15 MG, QD
     Route: 065
     Dates: start: 2025, end: 202511
  2. TOLVAPTAN [Suspect]
     Active Substance: TOLVAPTAN
     Indication: Hyponatraemia
     Dosage: 30 MG, QD (DOSE INCREASED)
     Route: 065
     Dates: start: 202511

REACTIONS (1)
  - Blood sodium abnormal [Unknown]

NARRATIVE: CASE EVENT DATE: 20250101
